FAERS Safety Report 20643130 (Version 1)
Quarter: 2022Q1

REPORT INFORMATION
  Report Type: Spontaneous
  Country: US (occurrence: US)
  Receive Date: 20220328
  Receipt Date: 20220328
  Transmission Date: 20220424
  Serious: No
  Sender: FDA-Public Use
  Company Number: US-APOTEX-2022AP004346

PATIENT
  Sex: Female

DRUGS (3)
  1. BUPRENORPHINE TRANSDERMAL SYSTEM [Suspect]
     Active Substance: BUPRENORPHINE
     Indication: Pain
     Dosage: 1 DOSAGE FORM, Q.WK.
     Route: 065
  2. LORATADINE [Concomitant]
     Active Substance: LORATADINE
     Indication: Pain
     Dosage: 1 DOSAGE FORM, BID
     Route: 048
  3. BUPROPION [Concomitant]
     Active Substance: BUPROPION
     Indication: Anxiety
     Dosage: UNK
     Route: 065

REACTIONS (6)
  - Blister [Recovered/Resolved]
  - Blood blister [Recovered/Resolved]
  - Application site pain [Recovering/Resolving]
  - Product adhesion issue [Unknown]
  - Product substitution issue [Unknown]
  - Rash [Recovering/Resolving]
